FAERS Safety Report 13595858 (Version 1)
Quarter: 2017Q2

REPORT INFORMATION
  Report Type: Spontaneous
  Country: US (occurrence: US)
  Receive Date: 20170531
  Receipt Date: 20170531
  Transmission Date: 20170830
  Serious: No
  Sender: FDA-Public Use
  Company Number: US-JNJFOC-20170510124

PATIENT
  Age: 60 Year
  Sex: Female
  Weight: 81.65 kg

DRUGS (3)
  1. TYLENOL EXTRA STRENGTH [Suspect]
     Active Substance: ACETAMINOPHEN
     Indication: PAIN
     Route: 048
     Dates: start: 20170501, end: 20170501
  2. MOTRIN IB [Suspect]
     Active Substance: IBUPROFEN
     Route: 065
  3. MOTRIN IB [Suspect]
     Active Substance: IBUPROFEN
     Indication: PAIN
     Dosage: 1 CAPLET, 1 WEEK.
     Route: 065
     Dates: start: 20170501

REACTIONS (2)
  - Chest discomfort [Unknown]
  - Chest pain [Recovering/Resolving]

NARRATIVE: CASE EVENT DATE: 20170501
